FAERS Safety Report 6430972-5 (Version None)
Quarter: 2009Q4

REPORT INFORMATION
  Report Type: 
  Country: None (occurrence: None)
  Receive Date: 20091106
  Receipt Date: 20091028
  Transmission Date: 20100525
  Serious: Yes (Hospitalization)
  Sender: FDA-Public Use
  Company Number: SE-PFIZER INC-2009237992

PATIENT
  Age: 73 Year
  Sex: Male
  Weight: 90 kg

DRUGS (20)
  1. BLINDED *NO SUBJECT DRUG [Suspect]
     Indication: CARDIAC FAILURE
     Dosage: UNK
     Route: 048
     Dates: start: 20070515
  2. BLINDED *PLACEBO [Suspect]
     Indication: CARDIAC FAILURE
     Dosage: UNK
     Route: 048
     Dates: start: 20070515
  3. BLINDED EPLERENONE [Suspect]
     Indication: CARDIAC FAILURE
     Dosage: UNK
     Route: 048
     Dates: start: 20070515
  4. CHLORPROTHIXENE [Concomitant]
     Dosage: UNK
     Route: 048
     Dates: start: 19670101
  5. LEVOTHYROXINE [Concomitant]
     Dosage: UNK
     Route: 048
     Dates: start: 19790101
  6. ALPRAZOLAM [Concomitant]
     Dosage: UNK
     Route: 048
     Dates: start: 19970101
  7. METFORMIN [Concomitant]
     Dosage: UNK
     Route: 048
     Dates: start: 19940101
  8. TORASEMIDE [Concomitant]
     Dosage: UNK
     Route: 048
     Dates: start: 19960101
  9. KARBAMAZEPIN [Concomitant]
     Dosage: UNK
     Route: 048
     Dates: start: 19970101
  10. HUMALOG MIX [Concomitant]
     Dosage: UNK
     Route: 042
     Dates: start: 20010101
  11. ACETYLCYSTEINE [Concomitant]
     Dosage: UNK
     Route: 048
     Dates: start: 20020101
  12. BUDESONIDE [Concomitant]
     Dosage: UNK
     Route: 048
     Dates: start: 20020101
  13. FORMOTEROL [Concomitant]
     Dosage: UNK
     Route: 048
     Dates: start: 20020101
  14. PROPIOMAZINE [Concomitant]
     Dosage: UNK
     Route: 048
     Dates: start: 20030101
  15. ATORVASTATIN [Concomitant]
     Dosage: UNK
     Route: 048
  16. BISOPROLOL [Concomitant]
     Dosage: UNK
     Route: 048
     Dates: start: 20061001
  17. FUROSEMID [Concomitant]
     Dosage: UNK
     Route: 048
     Dates: start: 20061001
  18. ENALAPRIL [Concomitant]
     Dosage: UNK
     Route: 048
     Dates: start: 20070112
  19. WARFARIN [Concomitant]
     Dosage: UNK
     Route: 048
     Dates: start: 20071001
  20. CORDARONE [Concomitant]
     Dosage: UNK
     Route: 048
     Dates: start: 20090218, end: 20090709

REACTIONS (5)
  - BACK INJURY [None]
  - CARDIAC FAILURE [None]
  - CONDITION AGGRAVATED [None]
  - FALL [None]
  - INJURY [None]
